FAERS Safety Report 13179889 (Version 1)
Quarter: 2017Q1

REPORT INFORMATION
  Report Type: Spontaneous
  Country: US (occurrence: US)
  Receive Date: 20170202
  Receipt Date: 20170202
  Transmission Date: 20170428
  Serious: No
  Sender: FDA-Public Use
  Company Number: US-TARO-2016TAR00687

PATIENT
  Sex: Female
  Weight: 65.76 kg

DRUGS (2)
  1. SIMVASTATIN. [Concomitant]
     Active Substance: SIMVASTATIN
     Dosage: 10 MG, 1X/DAY
  2. FLUOCINONIDE TOPICAL SOLUTION USP 0.05% [Suspect]
     Active Substance: FLUOCINONIDE
     Indication: PRURITUS
     Dosage: UNK UNK, 1X/DAY
     Route: 061
     Dates: start: 201607, end: 201608

REACTIONS (4)
  - Burning sensation [Unknown]
  - Vision blurred [Recovering/Resolving]
  - Drug ineffective [Not Recovered/Not Resolved]
  - Ocular hyperaemia [Recovering/Resolving]

NARRATIVE: CASE EVENT DATE: 2016
